FAERS Safety Report 10179666 (Version 1)
Quarter: 2014Q2

REPORT INFORMATION
  Report Type: Spontaneous
  Country: US (occurrence: None)
  Receive Date: 20140515
  Receipt Date: 20140515
  Transmission Date: 20141212
  Serious: Yes (Life-Threatening)
  Sender: FDA-Public Use
  Company Number: FK201401750

PATIENT
  Age: 49 Year
  Sex: Female
  Weight: 110 kg

DRUGS (3)
  1. PROPOFOL (MANUFACTURER UNKNOWN) (PROPOFOL) (PROPOFOL)? [Suspect]
     Indication: INDUCTION OF ANAESTHESIA
     Dosage: 250 MG, 1 IN 1 D, INTRAVENOUS (NOT OTHERWISE SPECIFIED)?
     Route: 042
  2. MIDAZOLAM (MIDAZOLAM) [Concomitant]
  3. OXYGEN (OXYGEN) (OXYGEN) [Concomitant]

REACTIONS (1)
  - Joint stiffness [None]
